FAERS Safety Report 8733404 (Version 2)
Quarter: 2012Q4

REPORT INFORMATION
  Report Type: Report from Study
  Country: BR (occurrence: BR)
  Receive Date: 20120821
  Receipt Date: 20120928
  Transmission Date: 20130627
  Serious: Yes (Hospitalization)
  Sender: FDA-Public Use
  Company Number: BR-US-EMD SERONO, INC.-7154550

PATIENT
  Age: 32 None
  Sex: Male

DRUGS (3)
  1. REBIF [Suspect]
     Indication: RELAPSING-REMITTING MULTIPLE SCLEROSIS
     Dates: start: 201106
  2. PARACETAMOL [Concomitant]
     Indication: PAIN
  3. DORFLEX [Concomitant]
     Indication: PAIN

REACTIONS (11)
  - Central nervous system lesion [Recovered/Resolved]
  - Muscular weakness [Recovered/Resolved]
  - Dysuria [Not Recovered/Not Resolved]
  - Influenza like illness [Unknown]
  - Pain [Unknown]
  - Headache [Unknown]
  - Injection site erythema [Unknown]
  - Injection site nodule [Unknown]
  - Injection site bruising [Unknown]
  - Injection site pain [Unknown]
  - Wrong technique in drug usage process [Unknown]
